FAERS Safety Report 6233424-0 (Version None)
Quarter: 2009Q2

REPORT INFORMATION
  Report Type: 
  Country: None (occurrence: None)
  Receive Date: 20090617
  Receipt Date: 20090403
  Transmission Date: 20091009
  Serious: No
  Sender: FDA-Public Use
  Company Number: US-TYCO HEALTHCARE/MALLINCKRODT-T200900827

PATIENT
  Age: 69 Year
  Sex: Female

DRUGS (9)
  1. ULTRATAG [Suspect]
     Indication: RADIOISOTOPE SCAN
     Dosage: UNK
     Route: 042
     Dates: start: 20090403, end: 20090403
  2. ULTRA-TECHNEKOW [Concomitant]
     Indication: RADIOISOTOPE SCAN
     Dosage: 29.1 MCI, SINGLE
     Route: 042
     Dates: start: 20090403, end: 20090403
  3. ATENOLOL [Concomitant]
     Dosage: UNK
  4. HYDROCHLOROTHIAZIDE [Concomitant]
     Dosage: UNK
  5. LOVASTATIN [Concomitant]
     Dosage: UNK
  6. OMEPRAZOLE [Concomitant]
     Dosage: UNK
  7. POLYETHYLENE GLYCOL [Concomitant]
     Dosage: UNK
  8. CHOLESTYRAMINE [Concomitant]
     Dosage: UNK
  9. KLOR-CON [Concomitant]
     Dosage: UNK

REACTIONS (1)
  - DRUG INEFFECTIVE [None]
